FAERS Safety Report 16143956 (Version 2)
Quarter: 2019Q2

REPORT INFORMATION
  Report Type: Report from Study
  Country: US (occurrence: US)
  Receive Date: 20190401
  Receipt Date: 20190516
  Transmission Date: 20190711
  Serious: Yes (Hospitalization, Other)
  Sender: FDA-Public Use
  Company Number: US-ACTELION-A-US2019-185010

PATIENT
  Age: 67 Year
  Sex: Male

DRUGS (4)
  1. OPSUMIT [Suspect]
     Active Substance: MACITENTAN
     Indication: PULMONARY ARTERIAL HYPERTENSION
     Dosage: 10 MG, QD
     Route: 048
     Dates: start: 20180830, end: 20190504
  2. BUMEX [Concomitant]
     Active Substance: BUMETANIDE
     Dosage: UNK
     Dates: start: 20190103
  3. LASIX [Concomitant]
     Active Substance: FUROSEMIDE
     Dosage: UNK
     Dates: start: 20190103
  4. REVATIO [Concomitant]
     Active Substance: SILDENAFIL CITRATE
     Dosage: UNK
     Dates: start: 20190103

REACTIONS (22)
  - Fluid retention [Recovered/Resolved with Sequelae]
  - Cardiac failure acute [Recovered/Resolved]
  - Fatigue [Not Recovered/Not Resolved]
  - Oedema peripheral [Not Recovered/Not Resolved]
  - Bacteraemia [Not Recovered/Not Resolved]
  - Iron deficiency [Recovered/Resolved]
  - Fungal infection [Unknown]
  - Pyrexia [Not Recovered/Not Resolved]
  - Cardiac failure congestive [Recovering/Resolving]
  - Pulmonary hypertension [Unknown]
  - Influenza [Recovered/Resolved]
  - Endocarditis [Recovered/Resolved with Sequelae]
  - Dyspnoea [Not Recovered/Not Resolved]
  - Anaemia [Recovered/Resolved with Sequelae]
  - Product dose omission [Unknown]
  - Memory impairment [Unknown]
  - Haemoglobin decreased [Not Recovered/Not Resolved]
  - Transfusion [Recovered/Resolved]
  - Streptococcus test positive [Recovered/Resolved with Sequelae]
  - Blood disorder [Recovered/Resolved]
  - Pericardial effusion [Recovered/Resolved]
  - Internal haemorrhage [Recovered/Resolved]

NARRATIVE: CASE EVENT DATE: 201901
